FAERS Safety Report 8739211 (Version 3)
Quarter: 2012Q4

REPORT INFORMATION
  Report Type: 
  Country: US (occurrence: US)
  Receive Date: 20120823
  Receipt Date: 20121115
  Transmission Date: 20130627
  Serious: Yes (Death, Other)
  Sender: FDA-Public Use
  Company Number: US-BAYER-2012-086431

PATIENT
  Age: 57 Year
  Sex: Male
  Weight: 137 kg

DRUGS (18)
  1. TRASYLOL [Suspect]
     Indication: CORONARY ARTERY BYPASS GRAFT
     Dosage: 200 CC
     Route: 042
     Dates: start: 20070403, end: 20070403
  2. TRASYLOL [Suspect]
     Indication: CARDIAC ABLATION
  3. LANTUS [Concomitant]
     Dosage: 20 u, QOD
     Route: 048
  4. PRINIVIL [Concomitant]
     Dosage: UNK
  5. AVANDIA [Concomitant]
     Dosage: 4 mg, QD
  6. COZAAR [Concomitant]
     Dosage: 50 mg, DAILY
  7. CLONIDINE [Concomitant]
     Dosage: 0.1 mg, DAILY
  8. ZOCOR [Concomitant]
     Dosage: 20 mg,DAILY
  9. VANCOMYCIN [Concomitant]
     Dosage: 1 g, UNK
  10. ISOFLURANE [Concomitant]
     Dosage: UNK
     Dates: start: 20070403, end: 20070403
  11. ETOMIDATE [Concomitant]
     Dosage: UNK
     Dates: start: 20070403, end: 20070403
  12. HEPARIN [Concomitant]
     Dosage: UNK
     Dates: start: 20070403, end: 20070403
  13. PROTAMINE [Concomitant]
     Dosage: UNK
     Dates: start: 20070403, end: 20070403
  14. SOLUMEDROL [Concomitant]
     Dosage: 1 g,pump prime
     Dates: start: 20070403, end: 20070403
  15. DOBUTAMINE [Concomitant]
     Dosage: UNK
     Dates: start: 20070403, end: 20070403
  16. DOPAMINE [Concomitant]
     Dosage: UNK
     Dates: start: 20070403, end: 20070403
  17. CONTRAST MEDIA [Concomitant]
     Indication: CARDIAC CATHETERIZATION
     Dosage: UNK
     Dates: start: 20070402
  18. XANAX [Concomitant]

REACTIONS (6)
  - Renal failure [Fatal]
  - Multi-organ failure [Fatal]
  - Pericardial effusion [None]
  - Pericarditis [None]
  - Atrial fibrillation [None]
  - Hypotension [None]
